FAERS Safety Report 9686341 (Version 3)
Quarter: 2013Q4

REPORT INFORMATION
  Report Type: Spontaneous
  Country: CA (occurrence: CA)
  Receive Date: 20131113
  Receipt Date: 20131230
  Transmission Date: 20140711
  Serious: Yes (Other)
  Sender: FDA-Public Use
  Company Number: CA-GLAXOSMITHKLINE-A0956497A

PATIENT
  Age: 38 Year
  Sex: Female
  Weight: 66 kg

DRUGS (5)
  1. BENLYSTA [Suspect]
     Indication: SYSTEMIC LUPUS ERYTHEMATOSUS
     Dosage: 600MG SEE DOSAGE TEXT
     Route: 042
     Dates: start: 20111121
  2. IMURAN [Concomitant]
     Indication: IMMUNOSUPPRESSION
     Dosage: 300MG PER DAY
     Route: 048
  3. PREDNISONE [Concomitant]
     Indication: STEROID THERAPY
     Dosage: 7.5MG PER DAY
     Route: 048
  4. LOSEC [Concomitant]
     Dosage: 1TAB PER DAY
     Route: 048
  5. UNKNOWN MEDICATION [Concomitant]

REACTIONS (5)
  - Migraine [Not Recovered/Not Resolved]
  - Muscle spasms [Not Recovered/Not Resolved]
  - Hypoaesthesia [Not Recovered/Not Resolved]
  - Eye infection [Unknown]
  - Renal disorder [Unknown]
